FAERS Safety Report 6169063-X (Version None)
Quarter: 2009Q2

REPORT INFORMATION
  Report Type: 
  Country: None (occurrence: None)
  Receive Date: 20090427
  Receipt Date: 20081002
  Transmission Date: 20091009
  Serious: Yes (Other)
  Sender: FDA-Public Use
  Company Number: US-ELI_LILLY_AND_COMPANY-US200810000522

PATIENT
  Sex: Male
  Weight: 114.29 kg

DRUGS (16)
  1. BYETTA [Suspect]
     Indication: INSULIN-REQUIRING TYPE 2 DIABETES MELLITUS
     Dosage: 5 UG, 2/D
     Route: 058
     Dates: start: 20060101, end: 20060101
  2. BYETTA [Suspect]
     Dosage: 10 UG, DAILY (1/D)
     Route: 058
     Dates: start: 20060101
  3. GLUCOTROL [Concomitant]
     Indication: INSULIN-REQUIRING TYPE 2 DIABETES MELLITUS
     Dosage: 10 MG, DAILY (1/D)
     Route: 048
  4. PRECOSE [Concomitant]
     Indication: INSULIN-REQUIRING TYPE 2 DIABETES MELLITUS
     Dosage: 50 UG, 3/D
  5. LANTUS [Concomitant]
     Indication: INSULIN-REQUIRING TYPE 2 DIABETES MELLITUS
     Dosage: 10 U, EACH EVENING
     Route: 058
  6. LANTUS [Concomitant]
     Dosage: 12 U, EACH EVENING
  7. AVANDIA [Concomitant]
     Indication: INSULIN-REQUIRING TYPE 2 DIABETES MELLITUS
     Dates: end: 20060101
  8. GLIPIZIDE [Concomitant]
     Indication: TYPE 2 DIABETES MELLITUS
     Dosage: 10 MG, 3/D
  9. LISINOPRIL [Concomitant]
     Dosage: 40 MG, DAILY (1/D)
  10. TERAZOSIN HCL [Concomitant]
     Dosage: 5 MG, DAILY (1/D)
  11. CARVEDILOL [Concomitant]
     Dosage: 6.25 MG, 2/D
  12. FUROSEMIDE [Concomitant]
     Dosage: 120 MG, UNK
  13. SIMVASTATIN [Concomitant]
     Indication: BLOOD CHOLESTEROL
     Dosage: 20 MG, DAILY (1/D)
  14. LIPITOR [Concomitant]
     Indication: BLOOD CHOLESTEROL
  15. SOTALOL HYDROCHLORIDE [Concomitant]
     Dosage: 80 MG, 2/D
  16. ASPIRIN [Concomitant]
     Dosage: 81 MG, UNK

REACTIONS (5)
  - BLOOD GLUCOSE DECREASED [None]
  - DRUG EFFECT DECREASED [None]
  - MYODESOPSIA [None]
  - RETINAL DETACHMENT [None]
  - WEIGHT DECREASED [None]
